FAERS Safety Report 9819381 (Version 3)
Quarter: 2015Q1

REPORT INFORMATION
  Report Type: Spontaneous
  Country: US (occurrence: US)
  Receive Date: 20140115
  Receipt Date: 20150119
  Transmission Date: 20150721
  Serious: Yes (Death, Life-Threatening, Hospitalization, Other)
  Sender: FDA-Public Use
  Company Number: US-009507513-1401USA004918

PATIENT
  Sex: Female
  Weight: 92.97 kg

DRUGS (1)
  1. JANUVIA [Suspect]
     Active Substance: SITAGLIPTIN PHOSPHATE
     Indication: TYPE 2 DIABETES MELLITUS
     Dosage: 100 MG, QD
     Route: 048
     Dates: start: 20090901, end: 20100131

REACTIONS (27)
  - Hypertension [Unknown]
  - Hyponatraemia [Unknown]
  - Arthroscopy [Unknown]
  - Bile duct obstruction [Unknown]
  - Hyperparathyroidism primary [Unknown]
  - Acute kidney injury [Unknown]
  - Hypophagia [Unknown]
  - Infusion site haemorrhage [Unknown]
  - Sepsis [Unknown]
  - Multiple endocrine neoplasia [Unknown]
  - Urine output decreased [Recovered/Resolved]
  - Tendon sheath incision [Unknown]
  - Mental status changes [Recovered/Resolved]
  - Hypercalcaemia of malignancy [Recovered/Resolved]
  - Metastases to liver [Unknown]
  - Cholecystectomy [Unknown]
  - Urinary retention [Recovered/Resolved]
  - Mass [Unknown]
  - Increased tendency to bruise [Unknown]
  - Pancreatic carcinoma [Fatal]
  - Diarrhoea infectious [Unknown]
  - Diarrhoea [Unknown]
  - Dehydration [Unknown]
  - Ammonia increased [Unknown]
  - Urinary tract infection [Unknown]
  - Leukocytosis [Unknown]
  - Parathyroid tumour benign [Unknown]

NARRATIVE: CASE EVENT DATE: 20110218
